FAERS Safety Report 7051807-6 (Version None)
Quarter: 2010Q4

REPORT INFORMATION
  Report Type: 
  Country: None (occurrence: None)
  Receive Date: 20101012
  Receipt Date: 20100927
  Transmission Date: 20110411
  Serious: Yes (Other)
  Sender: FDA-Public Use
  Company Number: 018092

PATIENT
  Sex: Female
  Weight: 67 kg

DRUGS (7)
  1. CIMZIA [Suspect]
     Indication: CROHN'S DISEASE
     Dosage: (SUBCUTANEOUS)
     Route: 058
     Dates: start: 20100825
  2. MERCAPTOPURINE [Concomitant]
  3. ASACOL [Concomitant]
  4. PURINETHOL [Concomitant]
  5. OMEPRAZOLE [Concomitant]
  6. ZYRTEC [Concomitant]
  7. EFFEXOR [Concomitant]

REACTIONS (2)
  - DRUG HYPERSENSITIVITY [None]
  - JOINT SWELLING [None]
